FAERS Safety Report 11779805 (Version 1)
Quarter: 2015Q4

REPORT INFORMATION
  Report Type: Spontaneous
  Country: DE (occurrence: DE)
  Receive Date: 20151125
  Receipt Date: 20151125
  Transmission Date: 20160304
  Serious: Yes (Other)
  Sender: FDA-Public Use
  Company Number: DE-RARE DISEASE THERAPEUTICS, INC.-1044679

PATIENT
  Age: 32 Year
  Sex: Female

DRUGS (3)
  1. MERCAPTOPURINE. [Suspect]
     Active Substance: MERCAPTOPURINE
  2. CORTICOSTEROID [Suspect]
     Active Substance: CORTICOSTEROID NOS
  3. PURIXAN [Suspect]
     Active Substance: MERCAPTOPURINE
     Indication: AUTOIMMUNE HEPATITIS

REACTIONS (3)
  - Pancytopenia [Unknown]
  - Off label use [Unknown]
  - Therapeutic response unexpected [Unknown]
